FAERS Safety Report 16183278 (Version 4)
Quarter: 2019Q2

REPORT INFORMATION
  Report Type: Spontaneous
  Country: US (occurrence: US)
  Receive Date: 20190411
  Receipt Date: 20190618
  Transmission Date: 20190711
  Serious: Yes (Hospitalization, Other)
  Sender: FDA-Public Use
  Company Number: US-BEH-2019101182

PATIENT
  Age: 55 Year
  Sex: Female

DRUGS (3)
  1. PRIVIGEN [Suspect]
     Active Substance: HUMAN IMMUNOGLOBULIN G
     Indication: CHRONIC INFLAMMATORY DEMYELINATING POLYRADICULONEUROPATHY
  2. SALINE                             /00075401/ [Concomitant]
     Active Substance: SODIUM CHLORIDE
     Route: 042
  3. PRIVIGEN [Suspect]
     Active Substance: HUMAN IMMUNOGLOBULIN G
     Indication: PRIMARY IMMUNODEFICIENCY SYNDROME
     Dosage: UNK
     Route: 042

REACTIONS (19)
  - Vasculitis [Unknown]
  - Angina pectoris [Unknown]
  - Incorrect drug administration rate [Unknown]
  - Blood pressure decreased [Unknown]
  - Chills [Unknown]
  - Renal disorder [Unknown]
  - Drug ineffective [Unknown]
  - Protein urine present [Unknown]
  - Heart rate increased [Unknown]
  - Intercepted product administration error [Unknown]
  - Back pain [Unknown]
  - Blood urine present [Unknown]
  - Headache [Unknown]
  - Fall [Unknown]
  - Pain in extremity [Unknown]
  - Product use issue [Unknown]
  - Vascular pain [Unknown]
  - Central nervous system vasculitis [Unknown]
  - Rash pruritic [Unknown]

NARRATIVE: CASE EVENT DATE: 2019
